FAERS Safety Report 10830449 (Version 1)
Quarter: 2015Q1

REPORT INFORMATION
  Report Type: Spontaneous
  Country: GB (occurrence: GB)
  Receive Date: 20150219
  Receipt Date: 20150219
  Transmission Date: 20150721
  Serious: Yes (Other)
  Sender: FDA-Public Use
  Company Number: GB-JNJFOC-20150203323

PATIENT
  Age: 85 Year
  Sex: Female
  Weight: 68 kg

DRUGS (20)
  1. FENTANYL CITRATE. [Suspect]
     Active Substance: FENTANYL CITRATE
     Indication: EPIDURAL ANAESTHESIA
     Dosage: GRADUAL EPIDURAL UP TO ACHIEVED IN 20 MIN
     Route: 008
  2. EPHEDRINE [Suspect]
     Active Substance: EPHEDRINE
     Indication: PRODUCT USED FOR UNKNOWN INDICATION
     Route: 065
  3. SODIUM LACTATE. [Suspect]
     Active Substance: SODIUM LACTATE
     Indication: PRODUCT USED FOR UNKNOWN INDICATION
     Route: 065
  4. PROPOFOL. [Suspect]
     Active Substance: PROPOFOL
     Indication: EPIDURAL ANAESTHESIA
     Dosage: 0.3 TO 0.8 MCG/ML
     Route: 065
  5. MARCAINE [Suspect]
     Active Substance: BUPIVACAINE HYDROCHLORIDE
     Indication: EPIDURAL ANAESTHESIA
     Dosage: 0.5% IN 1 ML SPINAL
     Route: 008
  6. PREGABALIN. [Suspect]
     Active Substance: PREGABALIN
     Indication: ANAESTHETIC PREMEDICATION
     Route: 065
  7. SODIUM CHLORIDE. [Suspect]
     Active Substance: SODIUM CHLORIDE
     Indication: PRODUCT USED FOR UNKNOWN INDICATION
     Route: 042
  8. CANDESARTAN [Concomitant]
     Active Substance: CANDESARTAN
     Indication: HYPERTENSION
     Route: 065
  9. ATENOLOL. [Concomitant]
     Active Substance: ATENOLOL
     Indication: HYPERTENSION
     Route: 065
  10. CHIROCAINE [Suspect]
     Active Substance: LEVOBUPIVACAINE HYDROCHLORIDE
     Indication: EPIDURAL ANAESTHESIA
     Route: 008
  11. LERCANIDIPINE [Concomitant]
     Active Substance: LERCANIDIPINE
     Indication: HYPERTENSION
     Route: 065
  12. DIAMORPHINE [Suspect]
     Active Substance: DIACETYLMORPHINE
     Indication: SURGERY
     Route: 065
  13. FENTANYL CITRATE. [Suspect]
     Active Substance: FENTANYL CITRATE
     Indication: EPIDURAL ANAESTHESIA
     Route: 008
  14. TEICOPLANIN [Suspect]
     Active Substance: TEICOPLANIN
     Indication: ANAESTHETIC PREMEDICATION
     Route: 065
  15. POTASSIUM CHLORIDE. [Suspect]
     Active Substance: POTASSIUM CHLORIDE
     Indication: PRODUCT USED FOR UNKNOWN INDICATION
     Dosage: 80 ML/HR (20MMOL)
     Route: 065
  16. METARAMINOL [Suspect]
     Active Substance: METARAMINOL
     Indication: PRODUCT USED FOR UNKNOWN INDICATION
     Dosage: TOTAL 3 DOSES
     Route: 065
  17. OMEPRAZOLE. [Suspect]
     Active Substance: OMEPRAZOLE
     Indication: ANAESTHETIC PREMEDICATION
     Route: 065
  18. GENTAMICIN. [Suspect]
     Active Substance: GENTAMICIN
     Indication: ANAESTHETIC PREMEDICATION
     Route: 065
  19. PLASMA-LYTE 148 [Suspect]
     Active Substance: MAGNESIUM CHLORIDE\POTASSIUM CHLORIDE\SODIUM ACETATE\SODIUM CHLORIDE\SODIUM GLUCONATE
     Indication: ANAESTHETIC PREMEDICATION
     Route: 065
     Dates: start: 20150116
  20. PLASMA-LYTE 148 [Suspect]
     Active Substance: MAGNESIUM CHLORIDE\POTASSIUM CHLORIDE\SODIUM ACETATE\SODIUM CHLORIDE\SODIUM GLUCONATE
     Indication: HIP ARTHROPLASTY
     Route: 065
     Dates: start: 20150116

REACTIONS (4)
  - Confusion postoperative [Unknown]
  - Metabolic alkalosis [Unknown]
  - Mental status changes postoperative [Recovering/Resolving]
  - Unevaluable event [Unknown]

NARRATIVE: CASE EVENT DATE: 20150116
